FAERS Safety Report 15479753 (Version 1)
Quarter: 2018Q4

REPORT INFORMATION
  Report Type: Spontaneous
  Country: US (occurrence: US)
  Receive Date: 20181009
  Receipt Date: 20181009
  Transmission Date: 20190205
  Serious: No
  Sender: FDA-Public Use
  Company Number: US-GLAXOSMITHKLINE-US2018178285

PATIENT
  Sex: Female

DRUGS (2)
  1. BENLYSTA [Suspect]
     Active Substance: BELIMUMAB
     Indication: SYSTEMIC LUPUS ERYTHEMATOSUS
     Dosage: UNK UNK, CYC
     Route: 042
     Dates: start: 201410, end: 201610
  2. BENLYSTA [Suspect]
     Active Substance: BELIMUMAB
     Indication: SYSTEMIC LUPUS ERYTHEMATOSUS
     Dosage: 200 MG, WE
     Route: 058
     Dates: start: 201808

REACTIONS (8)
  - Fatigue [Recovered/Resolved]
  - Myalgia [Recovered/Resolved]
  - Therapeutic response shortened [Recovered/Resolved]
  - Dizziness [Not Recovered/Not Resolved]
  - Inability to afford medication [Unknown]
  - Arthralgia [Recovered/Resolved]
  - Vertigo [Not Recovered/Not Resolved]
  - Injection site pain [Unknown]
